FAERS Safety Report 13969915 (Version 2)
Quarter: 2017Q3

REPORT INFORMATION
  Report Type: Spontaneous
  Country: DE (occurrence: DE)
  Receive Date: 20170914
  Receipt Date: 20170921
  Transmission Date: 20171128
  Serious: Yes (Other)
  Sender: FDA-Public Use
  Company Number: DE-PFIZER INC-2017393934

PATIENT
  Age: 76 Year
  Sex: Male

DRUGS (9)
  1. TRANEXAMIC ACID. [Suspect]
     Active Substance: TRANEXAMIC ACID
     Dosage: 2 G, UNK (500 MG 5 ML)
  2. HEPARIN-RATIOPHARM [Suspect]
     Active Substance: HEPARIN SODIUM
     Dosage: UNK
  3. HEPARIN-RATIOPHARM [Suspect]
     Active Substance: HEPARIN SODIUM
     Dosage: UNK
  4. NOREPINEPHRINE. [Concomitant]
     Active Substance: NOREPINEPHRINE
     Dosage: 1H POST-OP 1.0 UG/KG/MIN
  5. HEPARIN-RATIOPHARM [Suspect]
     Active Substance: HEPARIN SODIUM
     Dosage: UNK
  6. NOREPINEPHRINE. [Concomitant]
     Active Substance: NOREPINEPHRINE
     Dosage: AFTER 8H POST-OP 0.15 UG/KG/MIN
  7. HEPARIN-RATIOPHARM [Suspect]
     Active Substance: HEPARIN SODIUM
     Dosage: 70000 IU, UNK
     Route: 042
  8. NOREPINEPHRINE. [Concomitant]
     Active Substance: NOREPINEPHRINE
     Dosage: 0.35 UG/KG/MIN
  9. HEPARIN-RATIOPHARM [Suspect]
     Active Substance: HEPARIN SODIUM
     Dosage: 45000 IU, UNK
     Route: 042

REACTIONS (4)
  - Hypotension [Unknown]
  - Coagulation time abnormal [Unknown]
  - Drug ineffective [Unknown]
  - Arrhythmia [Unknown]

NARRATIVE: CASE EVENT DATE: 20170830
